FAERS Safety Report 16982080 (Version 4)
Quarter: 2020Q3

REPORT INFORMATION
  Report Type: Spontaneous
  Country: US (occurrence: US)
  Receive Date: 20191101
  Receipt Date: 20200803
  Transmission Date: 20201102
  Serious: No
  Sender: FDA-Public Use
  Company Number: US-AMGEN INC.-USASP2019179940

PATIENT

DRUGS (3)
  1. TOPIRAMATE. [Concomitant]
     Active Substance: TOPIRAMATE
     Dosage: UNK
  2. AIMOVIG [Suspect]
     Active Substance: ERENUMAB-AOOE
     Indication: MIGRAINE
     Dosage: UNK
     Route: 065
  3. EMGALITY [Suspect]
     Active Substance: GALCANEZUMAB-GNLM
     Indication: MIGRAINE
     Dosage: UNK
     Route: 065

REACTIONS (18)
  - Palpitations [Recovered/Resolved]
  - Vision blurred [Unknown]
  - Trichorrhexis [Not Recovered/Not Resolved]
  - Weight increased [Unknown]
  - Dry skin [Unknown]
  - Skin wrinkling [Unknown]
  - Arthralgia [Unknown]
  - Alopecia [Recovered/Resolved]
  - Tremor [Recovered/Resolved]
  - Insomnia [Recovered/Resolved]
  - Therapy non-responder [Unknown]
  - Chest discomfort [Unknown]
  - Anxiety [Recovered/Resolved]
  - Lethargy [Unknown]
  - Skin exfoliation [Unknown]
  - Migraine [Not Recovered/Not Resolved]
  - Asthenia [Unknown]
  - Dyspnoea [Unknown]
